FAERS Safety Report 4406233-2 (Version None)
Quarter: 2004Q3

REPORT INFORMATION
  Report Type: 
  Country: None (occurrence: None)
  Receive Date: 20040723
  Receipt Date: 20011212
  Transmission Date: 20050211
  Serious: No
  Sender: FDA-Public Use
  Company Number: US-GLAXOSMITHKLINE-A0356327A

PATIENT
  Age: 67 Year
  Sex: Female
  Weight: 87.3 kg

DRUGS (15)
  1. AVANDIA [Suspect]
     Route: 048
     Dates: start: 20000901, end: 20011227
  2. PRILOSEC [Concomitant]
     Dosage: 20MG PER DAY
     Route: 048
  3. PREMARIN [Concomitant]
     Indication: HORMONE REPLACEMENT THERAPY
     Dosage: .625MG PER DAY
     Route: 048
  4. ALBUTEROL [Concomitant]
     Indication: ASTHMA
     Dosage: 4MG TWICE PER DAY
     Route: 048
  5. FUROSEMIDE [Concomitant]
     Indication: FLUID RETENTION
     Dosage: 40MG PER DAY
     Route: 048
  6. LOTENSIN [Concomitant]
     Indication: HYPERTENSION
     Dosage: 10MG PER DAY
     Route: 048
  7. AMLODIPINE [Concomitant]
     Indication: HYPERTENSION
     Dosage: 5MG PER DAY
     Route: 048
  8. GLUCOTROL [Concomitant]
     Dosage: 5MG PER DAY
     Route: 048
  9. ZOCOR [Concomitant]
     Dosage: 40MG PER DAY
     Route: 048
  10. LEVOTHYROXIN [Concomitant]
     Indication: HYPOTHYROIDISM
     Dosage: 100MCG PER DAY
     Route: 048
  11. TYLENOL [Concomitant]
     Indication: ARTHRITIS
     Dosage: 1TAB PER DAY
     Route: 048
  12. NAPROXEN [Concomitant]
     Indication: BACK PAIN
     Dosage: 250MG AS REQUIRED
     Route: 048
  13. POTASSIUM [Concomitant]
     Dosage: 1TAB PER DAY
     Route: 048
  14. VITAMIN C [Concomitant]
     Route: 048
  15. VITAMIN E [Concomitant]
     Route: 048

REACTIONS (16)
  - ARTHROPATHY [None]
  - ASTHENIA [None]
  - BACK PAIN [None]
  - BLISTER [None]
  - CHEST PAIN [None]
  - COUGH [None]
  - DYSPNOEA [None]
  - FATIGUE [None]
  - FLUID RETENTION [None]
  - HEADACHE [None]
  - MUSCULAR WEAKNESS [None]
  - PAIN IN EXTREMITY [None]
  - RASH [None]
  - SWELLING [None]
  - UPPER RESPIRATORY TRACT INFECTION [None]
  - WEIGHT INCREASED [None]
